FAERS Safety Report 4382221-X (Version None)
Quarter: 2004Q2

REPORT INFORMATION
  Report Type: 
  Country: None (occurrence: None)
  Receive Date: 20040615
  Receipt Date: 20040601
  Transmission Date: 20050107
  Serious: No
  Sender: FDA-Public Use
  Company Number: 100570

PATIENT
  Age: 17 Year
  Sex: Male
  Weight: 66.8 kg

DRUGS (2)
  1. NUTROPIN AQ [Suspect]
     Indication: ACUTE LYMPHOCYTIC LEUKAEMIA
     Dosage: 2.5 MG, 6/WEEK, SUBCUTANEOUS
     Route: 058
     Dates: start: 20000301, end: 20011217
  2. SYNTHROID [Concomitant]

REACTIONS (3)
  - ABDOMINAL PAIN [None]
  - DIABETES MELLITUS NON-INSULIN-DEPENDENT [None]
  - GLUCOSE TOLERANCE IMPAIRED [None]
